FAERS Safety Report 19949927 (Version 1)
Quarter: 2021Q4

REPORT INFORMATION
  Report Type: Spontaneous
  Country: US (occurrence: US)
  Receive Date: 20211013
  Receipt Date: 20211013
  Transmission Date: 20220303
  Serious: Yes (Hospitalization)
  Sender: FDA-Public Use
  Company Number: None

PATIENT
  Age: 76 Year
  Sex: Female
  Weight: 81.45 kg

DRUGS (10)
  1. REGEN-COV [Suspect]
     Active Substance: CASIRIVIMAB\IMDEVIMAB
     Indication: COVID-19
     Dosage: ?          OTHER FREQUENCY:ONCE;
     Route: 042
     Dates: start: 20211007, end: 20211007
  2. VALSARTAN [Concomitant]
     Active Substance: VALSARTAN
     Dates: start: 20211007, end: 20211007
  3. COMPAZINE [Concomitant]
     Active Substance: PROCHLORPERAZINE MALEATE
     Dates: start: 20211007
  4. ZOFRAN [Concomitant]
     Active Substance: ONDANSETRON HYDROCHLORIDE
     Dates: start: 20211007
  5. REGLAN [Concomitant]
     Active Substance: METOCLOPRAMIDE HYDROCHLORIDE
     Dates: start: 20211007
  6. EPINEPHRINE [Concomitant]
     Active Substance: EPINEPHRINE
     Dates: start: 20211007
  7. BENADRYL [Concomitant]
     Active Substance: DIPHENHYDRAMINE HYDROCHLORIDE
     Dates: start: 20211007
  8. TYLENOL [Concomitant]
     Active Substance: ACETAMINOPHEN
     Dates: start: 20211007
  9. HYDROCHLOROTHIAZIDE [Concomitant]
     Active Substance: HYDROCHLOROTHIAZIDE
     Dates: start: 20201102
  10. IRBESARTAN [Concomitant]
     Active Substance: IRBESARTAN
     Dates: start: 20210304

REACTIONS (6)
  - Blood pressure systolic increased [None]
  - Pyrexia [None]
  - Fatigue [None]
  - Cough [None]
  - Anxiety [None]
  - Heart rate decreased [None]

NARRATIVE: CASE EVENT DATE: 20211007
